FAERS Safety Report 24581574 (Version 1)
Quarter: 2024Q4

REPORT INFORMATION
  Report Type: Spontaneous
  Country: DE (occurrence: DE)
  Receive Date: 20241105
  Receipt Date: 20241105
  Transmission Date: 20250115
  Serious: Yes (Other)
  Sender: NOVARTIS
  Company Number: DE-PFIZER INC-2018113012

PATIENT
  Age: 58 Year
  Sex: Male

DRUGS (2)
  1. CYCLOSPORINE [Suspect]
     Active Substance: CYCLOSPORINE
     Indication: Immunosuppression
     Dosage: UNK
     Route: 065
  2. METHOTREXATE SODIUM [Suspect]
     Active Substance: METHOTREXATE SODIUM
     Indication: Immunosuppression
     Dosage: UNK
     Route: 065

REACTIONS (6)
  - Hyperbilirubinaemia [Unknown]
  - Hepatotoxicity [Unknown]
  - Sepsis [Unknown]
  - Venoocclusive liver disease [Unknown]
  - Nausea [Unknown]
  - Stomatitis [Unknown]
